FAERS Safety Report 14633633 (Version 1)
Quarter: 2018Q1

REPORT INFORMATION
  Report Type: Report from Study
  Country: DE (occurrence: DE)
  Receive Date: 20180314
  Receipt Date: 20180314
  Transmission Date: 20180509
  Serious: Yes (Hospitalization)
  Sender: FDA-Public Use
  Company Number: DE-TAKEDA-2017TUS025864

PATIENT
  Age: 55 Year
  Sex: Male

DRUGS (1)
  1. VEDOLIZUMAB [Suspect]
     Active Substance: VEDOLIZUMAB
     Indication: COLITIS ULCERATIVE
     Dosage: UNK
     Route: 042
     Dates: start: 20171130

REACTIONS (7)
  - Abdominal discomfort [Unknown]
  - Pancreatic disorder [Unknown]
  - Abdominal pain lower [Unknown]
  - Myalgia [Unknown]
  - Flatulence [Unknown]
  - Fatigue [Unknown]
  - Cardiovascular disorder [Unknown]

NARRATIVE: CASE EVENT DATE: 20171201
